FAERS Safety Report 9775276 (Version 2)
Quarter: 2013Q4

REPORT INFORMATION
  Report Type: Spontaneous
  Country: US (occurrence: US)
  Receive Date: 20131220
  Receipt Date: 20131220
  Transmission Date: 20140711
  Serious: No
  Sender: FDA-Public Use
  Company Number: US-GALDERMA-US13003112

PATIENT
  Age: 32 Year
  Sex: Female
  Weight: 102.15 kg

DRUGS (1)
  1. MIRVASO (BRIMONIDINE) TOPICAL GEL, 0.33% [Suspect]
     Indication: ROSACEA
     Dosage: 0.33%
     Route: 061
     Dates: start: 20130927, end: 20131003

REACTIONS (11)
  - Blepharospasm [Recovered/Resolved]
  - Hypoaesthesia eye [Recovered/Resolved]
  - Urticaria [Recovered/Resolved]
  - Feeling hot [Recovered/Resolved]
  - Condition aggravated [Recovered/Resolved]
  - Rash macular [Recovered/Resolved]
  - Skin fragility [Recovered/Resolved]
  - Pain of skin [Recovered/Resolved]
  - Paraesthesia [Recovered/Resolved]
  - Skin burning sensation [Recovered/Resolved]
  - Flushing [Recovered/Resolved]
